FAERS Safety Report 6782246-0 (Version None)
Quarter: 2010Q2

REPORT INFORMATION
  Report Type: 
  Country: None (occurrence: None)
  Receive Date: 20100621
  Receipt Date: 20100607
  Transmission Date: 20101027
  Serious: Yes (Hospitalization)
  Sender: FDA-Public Use
  Company Number: US-WATSON-2010-08013

PATIENT
  Age: 48 Year
  Sex: Male

DRUGS (2)
  1. ATENOLOL [Suspect]
     Indication: BLOOD PRESSURE INCREASED
     Dosage: 50 MG, SINGLE
  2. METHYLPREDNISOLONE [Suspect]
     Indication: DRUG USE FOR UNKNOWN INDICATION
     Dosage: UNK

REACTIONS (3)
  - GASTROINTESTINAL HAEMORRHAGE [None]
  - PNEUMONIA [None]
  - SYRINGOMYELIA [None]
